FAERS Safety Report 4880004-5 (Version None)
Quarter: 2006Q1

REPORT INFORMATION
  Report Type: 
  Country: None (occurrence: None)
  Receive Date: 20060111
  Receipt Date: 20050922
  Transmission Date: 20060701
  Serious: No
  Sender: FDA-Public Use
  Company Number: 2005S1000202

PATIENT
  Age: 68 Year
  Weight: 105 kg

DRUGS (11)
  1. CUBICIN [Suspect]
     Indication: MORGANELLA INFECTION
     Dosage: 420 MG;Q24H;IV
     Route: 042
     Dates: start: 20050902, end: 20050914
  2. CUBICIN [Suspect]
     Indication: PSEUDOMONAS INFECTION
     Dosage: 420 MG;Q24H;IV
     Route: 042
     Dates: start: 20050902, end: 20050914
  3. CUBICIN [Suspect]
     Indication: RETROPERITONEAL ABSCESS
     Dosage: 420 MG;Q24H;IV
     Route: 042
     Dates: start: 20050902, end: 20050914
  4. CUBICIN [Suspect]
     Indication: STAPHYLOCOCCAL INFECTION
     Dosage: 420 MG;Q24H;IV
     Route: 042
     Dates: start: 20050902, end: 20050914
  5. AMARYL [Concomitant]
  6. LOTREL [Concomitant]
  7. ATENOLOL [Concomitant]
  8. LEVAQUIN [Concomitant]
  9. KLOR-CON [Concomitant]
  10. FUROSEMIDE [Concomitant]
  11. HYDROCHLOROTHIAZIDE [Concomitant]

REACTIONS (3)
  - ALANINE AMINOTRANSFERASE INCREASED [None]
  - ASPARTATE AMINOTRANSFERASE INCREASED [None]
  - BLOOD CREATINE PHOSPHOKINASE INCREASED [None]
